FAERS Safety Report 5609536-9 (Version None)
Quarter: 2008Q1

REPORT INFORMATION
  Report Type: 
  Country: None (occurrence: None)
  Receive Date: 20080131
  Receipt Date: 20080122
  Transmission Date: 20080703
  Serious: Yes (Other)
  Sender: FDA-Public Use
  Company Number: US-PFIZER INC-2008006773

PATIENT
  Sex: Female
  Weight: 61.818 kg

DRUGS (4)
  1. CORTEF [Suspect]
     Indication: SECONDARY ADRENOCORTICAL INSUFFICIENCY
     Dosage: TEXT:EVERYDAY TDD:15MG
  2. NEXIUM [Concomitant]
     Route: 048
  3. AVIANE-21 [Concomitant]
     Route: 048
  4. SPIRONOLACTONE W/ HYDROCHLOROTHIAZIDE [Concomitant]
     Route: 048

REACTIONS (8)
  - ABDOMINAL DISTENSION [None]
  - DIVERTICULITIS [None]
  - DRUG INEFFECTIVE [None]
  - EATING DISORDER [None]
  - LARGE INTESTINE PERFORATION [None]
  - MALAISE [None]
  - ROTATOR CUFF SYNDROME [None]
  - WEIGHT INCREASED [None]
